FAERS Safety Report 6128490-7 (Version None)
Quarter: 2009Q1

REPORT INFORMATION
  Report Type: 
  Country: None (occurrence: None)
  Receive Date: 20090323
  Receipt Date: 20090319
  Transmission Date: 20090719
  Serious: Yes (Life-Threatening, Hospitalization, Disabling, Other)
  Sender: FDA-Public Use
  Company Number: AU-ASTRAZENECA-2009AP01127

PATIENT
  Age: 17620 Day
  Sex: Female

DRUGS (4)
  1. SEROQUEL [Interacting]
     Indication: DEPRESSION
     Route: 048
     Dates: start: 20050101, end: 20090101
  2. EPIRUBICIN [Interacting]
  3. NORTRIPTYLINE HCL [Suspect]
  4. CHEMOTHERAPY [Concomitant]
     Indication: BREAST CANCER

REACTIONS (2)
  - CARDIOMYOPATHY [None]
  - DRUG INTERACTION [None]
